FAERS Safety Report 4886620-9 (Version None)
Quarter: 2005Q4

REPORT INFORMATION
  Report Type: 
  Country: None (occurrence: None)
  Receive Date: 20051220
  Receipt Date: 20050620
  Transmission Date: 20060501
  Serious: Yes (Other)
  Sender: FDA-Public Use
  Company Number: HQWYE613722JUN05

PATIENT
  Age: 56 Year
  Sex: Male
  Weight: 77.18 kg

DRUGS (6)
  1. EFFEXOR XR [Suspect]
     Indication: POST-TRAUMATIC STRESS DISORDER
     Dosage: 37.5 MG 1X PER 1 DAY, ORAL
     Route: 048
     Dates: start: 20020701, end: 20020101
  2. EFFEXOR XR [Suspect]
     Dosage: 75 MG 1X PER 1 DAY, ORAL
     Route: 047
     Dates: start: 20020101, end: 20020101
  3. EFFEXOR XR [Suspect]
     Dosage: 150 MG 1X PER 1 DAY, ORAL
     Route: 048
     Dates: start: 20020101, end: 20040315
  4. EFFEXOR XR [Suspect]
     Dosage: 225 MG 1X PER 1 DAY, ORAL
     Route: 048
     Dates: start: 20040316, end: 20050501
  5. EFFEXOR XR [Suspect]
     Dosage: 75 MG 1X PER 1 DAY, ORAL
     Route: 048
     Dates: start: 20050501, end: 20050601
  6. EFFEXOR XR [Suspect]
     Dosage: 150 MG 1X PER 1 DAY, ORAL
     Route: 048
     Dates: start: 20050601

REACTIONS (3)
  - DRUG WITHDRAWAL SYNDROME [None]
  - GRAND MAL CONVULSION [None]
  - POLLAKIURIA [None]
